FAERS Safety Report 5179161-5 (Version None)
Quarter: 2006Q4

REPORT INFORMATION
  Report Type: 
  Country: None (occurrence: None)
  Receive Date: 20061219
  Receipt Date: 20061206
  Transmission Date: 20070319
  Serious: Yes (Hospitalization)
  Sender: FDA-Public Use
  Company Number: GB-BRISTOL-MYERS SQUIBB COMPANY-13612916

PATIENT
  Age: 55 Year
  Sex: Male

DRUGS (2)
  1. CYCLOPHOSPHAMIDE [Suspect]
     Dates: start: 20061001, end: 20061001
  2. FLUDARABINE [Suspect]
     Dates: start: 20061001, end: 20061001

REACTIONS (1)
  - HAEMOLYSIS [None]
